FAERS Safety Report 18971522 (Version 1)
Quarter: 2021Q1

REPORT INFORMATION
  Report Type: Spontaneous
  Country: JP (occurrence: JP)
  Receive Date: 20210305
  Receipt Date: 20210305
  Transmission Date: 20210420
  Serious: Yes (Other)
  Sender: FDA-Public Use
  Company Number: JP-ASTRAZENECA-2021A099040

PATIENT
  Age: 46 Year
  Sex: Male
  Weight: 54.9 kg

DRUGS (5)
  1. IMFINZI [Suspect]
     Active Substance: DURVALUMAB
     Indication: SMALL CELL LUNG CANCER
     Dosage: UNKNOWN, THREE TIMES A WEEK
     Route: 042
  2. ETOPOSIDE. [Concomitant]
     Active Substance: ETOPOSIDE
     Dosage: DAY 1, 2, AND 3 OF EACH CYCLES, DOSE UNKNOWN
  3. AMPICILLIN AND SULBACTAM [Concomitant]
     Active Substance: AMPICILLIN SODIUM\SULBACTAM SODIUM
  4. CARBOPLATIN. [Concomitant]
     Active Substance: CARBOPLATIN
     Dosage: AUC5, DOSE UNKNOWN
  5. MEROPENEM. [Concomitant]
     Active Substance: MEROPENEM

REACTIONS (1)
  - COVID-19 [Unknown]
